FAERS Safety Report 4496676-3 (Version None)
Quarter: 2004Q4

REPORT INFORMATION
  Report Type: 
  Country: None (occurrence: None)
  Receive Date: 20041108
  Receipt Date: 20041108
  Transmission Date: 20050328
  Serious: Yes (Life-Threatening)
  Sender: FDA-Public Use
  Company Number: None

PATIENT
  Age: 70 Year
  Sex: Male
  Weight: 69.4 kg

DRUGS (7)
  1. HYDROCHLOROTHIAZIDE [Suspect]
     Dosage: 25MG DAILY, ORAL;  50 MG DAILY, ORAL
     Route: 048
     Dates: start: 20040427
  2. HYDROCHLOROTHIAZIDE [Suspect]
     Dosage: 25MG DAILY, ORAL;  50 MG DAILY, ORAL
     Route: 048
     Dates: start: 20040729
  3. LISINOPRIL [Concomitant]
  4. METFORMIN [Concomitant]
  5. METOPROLOL [Concomitant]
  6. RANITIDINE [Concomitant]
  7. NIFEDIPINE [Concomitant]

REACTIONS (1)
  - HYPONATRAEMIA [None]
